FAERS Safety Report 19088324 (Version 3)
Quarter: 2021Q2

REPORT INFORMATION
  Report Type: Report from Study
  Country: US (occurrence: US)
  Receive Date: 20210402
  Receipt Date: 20210625
  Transmission Date: 20210717
  Serious: Yes (Hospitalization, Other)
  Sender: FDA-Public Use
  Company Number: US-TAKEDA-2021TUS021070

PATIENT
  Age: 48 Year
  Sex: Male

DRUGS (9)
  1. TEDUGLUTIDE [Suspect]
     Active Substance: TEDUGLUTIDE
     Indication: PRODUCT USED FOR UNKNOWN INDICATION
     Dosage: .44 MILLIGRAM, QD
     Route: 058
     Dates: start: 20210323
  2. TEDUGLUTIDE [Suspect]
     Active Substance: TEDUGLUTIDE
     Dosage: 0.437 UNK
     Route: 058
     Dates: start: 20210324
  3. TEDUGLUTIDE [Suspect]
     Active Substance: TEDUGLUTIDE
     Indication: PRODUCT USED FOR UNKNOWN INDICATION
     Dosage: .44 MILLIGRAM, QD
     Route: 058
     Dates: start: 20210323
  4. TEDUGLUTIDE [Suspect]
     Active Substance: TEDUGLUTIDE
     Dosage: 0.437 UNK
     Route: 058
     Dates: start: 20210324
  5. TEDUGLUTIDE [Suspect]
     Active Substance: TEDUGLUTIDE
     Indication: PRODUCT USED FOR UNKNOWN INDICATION
     Dosage: .44 MILLIGRAM, QD
     Route: 058
     Dates: start: 20210323
  6. TEDUGLUTIDE [Suspect]
     Active Substance: TEDUGLUTIDE
     Dosage: 0.437 UNK
     Route: 058
     Dates: start: 20210324
  7. TEDUGLUTIDE [Suspect]
     Active Substance: TEDUGLUTIDE
     Dosage: 0.437 UNK
     Route: 058
     Dates: start: 20210324
  8. AMBIEN [Suspect]
     Active Substance: ZOLPIDEM TARTRATE
     Indication: PRODUCT USED FOR UNKNOWN INDICATION
     Dosage: 10 MILLIGRAM
     Route: 065
  9. TEDUGLUTIDE [Suspect]
     Active Substance: TEDUGLUTIDE
     Indication: PRODUCT USED FOR UNKNOWN INDICATION
     Dosage: .44 MILLIGRAM, QD
     Route: 058
     Dates: start: 20210323

REACTIONS (4)
  - Faeces hard [Unknown]
  - Loss of consciousness [Unknown]
  - Vascular device infection [Unknown]
  - Restlessness [Unknown]

NARRATIVE: CASE EVENT DATE: 20210607
